FAERS Safety Report 10268250 (Version 1)
Quarter: 2014Q2

REPORT INFORMATION
  Report Type: Report from Study
  Country: US (occurrence: US)
  Receive Date: 20140630
  Receipt Date: 20140630
  Transmission Date: 20141212
  Serious: Yes (Other)
  Sender: FDA-Public Use
  Company Number: PHHY2014US012749

PATIENT
  Age: 55 Year
  Sex: Female

DRUGS (19)
  1. LUCENTIS [Suspect]
     Indication: DIABETIC RETINAL OEDEMA
     Dosage: 0.3 MG, QMO
     Route: 031
  2. LUCENTIS [Suspect]
     Indication: DIABETIC RETINOPATHY
     Dosage: 0.3 MG, UNK (LEFT EYE)
     Route: 031
     Dates: start: 20121130
  3. LUCENTIS [Suspect]
     Dosage: 0.3 MG, UNK (RIGHT EYE)
     Route: 031
     Dates: start: 20121219
  4. LUCENTIS [Suspect]
     Dosage: 0.3 MG, UNK (LEFT EYE)
     Route: 031
     Dates: start: 20130419
  5. LUCENTIS [Suspect]
     Dosage: 0.3 MG, UNK (RIGHT EYE)
     Route: 031
     Dates: start: 20131018
  6. NAPROXEN [Suspect]
     Dosage: UNK UKN, UNK
  7. MICARDIS [Concomitant]
     Dosage: UNK UKN, UNK
  8. TIMOLOL [Concomitant]
     Dosage: 1 GTT, BID IN LEFT EYE
  9. NOVOLOG [Concomitant]
     Dosage: UNK UKN, UNK
  10. JANUMET [Concomitant]
     Dosage: UNK UKN, UNK
  11. CRESTOR [Concomitant]
     Dosage: UNK UKN, UNK
  12. FLUOXETINE [Concomitant]
     Dosage: UNK UKN, UNK
  13. FUROSEMIDE [Concomitant]
     Dosage: UNK UKN, UNK
  14. TROPICAMIDE [Concomitant]
     Dosage: UNK UKN, UNK
  15. PHENYLEPHRINE [Concomitant]
     Dosage: UNK UKN, UNK
  16. PROPARACAINE [Concomitant]
     Dosage: UNK UKN, UNK
  17. BETADINE [Concomitant]
     Dosage: UNK UKN, UNK
  18. CYCLOGYL [Concomitant]
     Dosage: UNK UKN, UNK
  19. NEVANAC [Concomitant]
     Dosage: UNK UKN, UNK

REACTIONS (6)
  - Cataract operation [Unknown]
  - Vitreous floaters [Unknown]
  - Eye haemorrhage [Unknown]
  - Vision blurred [Unknown]
  - Visual acuity reduced [Unknown]
  - Visual impairment [Unknown]
